FAERS Safety Report 6329573-9 (Version None)
Quarter: 2009Q3

REPORT INFORMATION
  Report Type: 
  Country: None (occurrence: None)
  Receive Date: 20090821
  Receipt Date: 20090107
  Transmission Date: 20100115
  Serious: Yes (Hospitalization)
  Sender: FDA-Public Use
  Company Number: 2009-0021047

PATIENT
  Age: 6 Year
  Sex: Male

DRUGS (1)
  1. VISTIDE [Suspect]
     Indication: CYTOMEGALOVIRUS CHORIORETINITIS

REACTIONS (1)
  - NEPHROPATHY TOXIC [None]
